FAERS Safety Report 5386324-2 (Version None)
Quarter: 2007Q3

REPORT INFORMATION
  Report Type: 
  Country: None (occurrence: None)
  Receive Date: 20070713
  Receipt Date: 20070704
  Transmission Date: 20080115
  Serious: Yes (Death, Hospitalization)
  Sender: FDA-Public Use
  Company Number: SE-NOVOPROD-254111

PATIENT
  Age: 4 Month
  Sex: Female
  Weight: 5 kg

DRUGS (7)
  1. NOVOSEVEN [Suspect]
     Indication: HAEMATEMESIS
     Dosage: 118 UG/KG, UNK
     Route: 042
     Dates: start: 20001020
  2. NOVOSEVEN [Suspect]
     Dosage: 118 UNK, UNK
     Route: 042
     Dates: start: 20001025
  3. NOVOSEVEN [Suspect]
     Dosage: 111 UNK, UNK
     Route: 042
     Dates: start: 20001030
  4. NOVOSEVEN [Suspect]
     Dosage: 99 UG/KG, UNK
     Route: 042
     Dates: start: 20001113
  5. OCTREOTIDE ACETATE [Concomitant]
     Dosage: 1.96 UG/KG/H, UNK
  6. OCTREOTIDE ACETATE [Concomitant]
     Dosage: 1.85 UG/KG/H, UNK
  7. OCTREOTIDE ACETATE [Concomitant]
     Dosage: 1.64 UG/KG/H, UNK

REACTIONS (1)
  - MULTI-ORGAN FAILURE [None]
